FAERS Safety Report 7003138-8 (Version None)
Quarter: 2010Q3

REPORT INFORMATION
  Report Type: 
  Country: None (occurrence: None)
  Receive Date: 20100920
  Receipt Date: 20100309
  Transmission Date: 20110219
  Serious: No
  Sender: FDA-Public Use
  Company Number: US-ASTRAZENECA-2009SE20205

PATIENT
  Age: 29 Year
  Sex: Female
  Weight: 197.8 kg

DRUGS (6)
  1. SEROQUEL [Suspect]
     Indication: DEPRESSION
     Route: 048
     Dates: start: 20030201, end: 20050901
  2. SEROQUEL [Suspect]
     Indication: SCHIZOPHRENIA
     Route: 048
     Dates: start: 20030201, end: 20050901
  3. ABILIFY [Concomitant]
     Dates: start: 20050101
  4. GEODON [Concomitant]
     Indication: SCHIZOPHRENIA
     Dates: start: 20040101
  5. THORAZINE [Concomitant]
  6. ZYPREXA [Concomitant]
     Dates: start: 20020101

REACTIONS (2)
  - OBESITY [None]
  - TYPE 2 DIABETES MELLITUS [None]
